FAERS Safety Report 21663401 (Version 1)
Quarter: 2022Q4

REPORT INFORMATION
  Report Type: Spontaneous
  Country: US (occurrence: US)
  Receive Date: 20221130
  Receipt Date: 20221130
  Transmission Date: 20230112
  Serious: No
  Sender: FDA-Public Use
  Company Number: US-GE HEALTHCARE-2022CSU006485

PATIENT
  Sex: Female

DRUGS (4)
  1. VISIPAQUE [Suspect]
     Active Substance: IODIXANOL
     Indication: Computerised tomogram
     Dosage: UNKNOWN DOSE VIA LEFT CUBITAL FOSSA, ONCE
     Route: 042
     Dates: start: 20220728, end: 20220728
  2. VISIPAQUE [Suspect]
     Active Substance: IODIXANOL
     Indication: Gallbladder disorder
  3. BENADRYL [Concomitant]
     Active Substance: DIPHENHYDRAMINE HYDROCHLORIDE
     Indication: Contrast media reaction
     Dosage: 50 MG, SINGLE
     Route: 048
     Dates: start: 20220728, end: 20220728
  4. BENADRYL [Concomitant]
     Active Substance: DIPHENHYDRAMINE HYDROCHLORIDE
     Indication: Sinus disorder
     Dosage: UNK, PRN
     Route: 048

REACTIONS (10)
  - Muscle spasms [Recovered/Resolved]
  - Peripheral coldness [Recovered/Resolved]
  - Capillary nail refill test abnormal [Recovered/Resolved]
  - Micturition urgency [Recovered/Resolved]
  - Injection site bruising [Unknown]
  - Skin discolouration [Recovered/Resolved]
  - Pain in extremity [Recovering/Resolving]
  - Feeling hot [Recovered/Resolved]
  - Paraesthesia [Recovering/Resolving]
  - Hypoaesthesia [Recovering/Resolving]

NARRATIVE: CASE EVENT DATE: 20220728
